FAERS Safety Report 12492681 (Version 2)
Quarter: 2016Q2

REPORT INFORMATION
  Report Type: Spontaneous
  Country: JP (occurrence: JP)
  Receive Date: 20160623
  Receipt Date: 20160630
  Transmission Date: 20160815
  Serious: Yes (Life-Threatening, Other)
  Sender: FDA-Public Use
  Company Number: JP-GLAXOSMITHKLINE-JP2016JPN077362

PATIENT
  Age: 21 Year
  Sex: Female
  Weight: 41 kg

DRUGS (5)
  1. DEPAKENE [Suspect]
     Active Substance: VALPROIC ACID
     Indication: SEIZURE
     Dosage: 400 MG, BID
     Route: 048
     Dates: end: 20141204
  2. TOPINA [Suspect]
     Active Substance: TOPIRAMATE
     Indication: SEIZURE
     Dosage: 150 MG, BID
     Route: 048
     Dates: end: 20141204
  3. E KEPPRA DRY SYRUP [Concomitant]
     Indication: SEIZURE
     Dosage: 1250 MG, BID
     Route: 048
  4. LAMICTAL [Suspect]
     Active Substance: LAMOTRIGINE
     Indication: EPILEPSY
     Dosage: 25 MG, QOD
     Route: 048
     Dates: start: 20141121, end: 20141204
  5. DIAMOX SEQUELS [Suspect]
     Active Substance: ACETAZOLAMIDE
     Dosage: UNK
     Route: 065

REACTIONS (9)
  - Stevens-Johnson syndrome [Recovered/Resolved]
  - Erythema of eyelid [Recovering/Resolving]
  - Rash [Recovered/Resolved]
  - Generalised erythema [Recovering/Resolving]
  - Pyrexia [Recovering/Resolving]
  - Lymphadenopathy [Recovering/Resolving]
  - Ocular hyperaemia [Recovering/Resolving]
  - Lip erosion [Recovering/Resolving]
  - Oral mucosa erosion [Recovering/Resolving]

NARRATIVE: CASE EVENT DATE: 20141203
